FAERS Safety Report 26068917 (Version 1)
Quarter: 2025Q4

REPORT INFORMATION
  Report Type: Spontaneous
  Country: JP (occurrence: JP)
  Receive Date: 20251120
  Receipt Date: 20251120
  Transmission Date: 20260117
  Serious: Yes (Other)
  Sender: BRISTOL-MYERS SQUIBB COMPANY
  Company Number: JP-BRISTOL-MYERS SQUIBB COMPANY-2025-010350

PATIENT
  Age: 46 Year
  Sex: Male

DRUGS (2)
  1. YERVOY [Suspect]
     Active Substance: IPILIMUMAB
     Indication: Colon cancer
     Dosage: ONE DOSE
     Route: 041
     Dates: start: 20240826, end: 20240826
  2. OPDIVO [Suspect]
     Active Substance: NIVOLUMAB
     Indication: Colon cancer
     Dosage: ONE DOSE
     Route: 041
     Dates: start: 20240826, end: 20240826

REACTIONS (7)
  - Immune-mediated myositis [Recovering/Resolving]
  - Atrioventricular block complete [Unknown]
  - Diplopia [Unknown]
  - Dysphagia [Unknown]
  - Eyelid ptosis [Unknown]
  - Liver disorder [Recovering/Resolving]
  - Cardiac arrest [Unknown]

NARRATIVE: CASE EVENT DATE: 20240801
